FAERS Safety Report 9339696 (Version 2)
Quarter: 2013Q3

REPORT INFORMATION
  Report Type: Report from Study
  Country: SI (occurrence: SI)
  Receive Date: 20130610
  Receipt Date: 20130729
  Transmission Date: 20140515
  Serious: Yes (Hospitalization)
  Sender: FDA-Public Use
  Company Number: SI-SANOFI-AVENTIS-2013SA056428

PATIENT
  Age: 66 Year
  Sex: Female

DRUGS (3)
  1. DOCETAXEL [Suspect]
     Indication: BREAST CANCER
     Route: 042
     Dates: start: 20081211, end: 20090114
  2. CAPECITABINE [Suspect]
     Indication: BREAST CANCER
     Dosage: FREQUENCY- 2 X/DAY FROM DAYS 1 TO 14
     Route: 048
     Dates: start: 20081211, end: 20090114
  3. CAPECITABINE [Suspect]
     Indication: BREAST CANCER
     Dosage: FREQUENCY- 2 X/DAY FROM DAYS 1 TO 14
     Route: 048
     Dates: start: 20081211, end: 20090114

REACTIONS (2)
  - Cholelithiasis [Recovering/Resolving]
  - Liver disorder [Recovered/Resolved]
